FAERS Safety Report 4559743-1 (Version None)
Quarter: 2005Q1

REPORT INFORMATION
  Report Type: 
  Country: None (occurrence: None)
  Receive Date: 20050114
  Receipt Date: 20040913
  Transmission Date: 20050727
  Serious: Yes (Hospitalization)
  Sender: FDA-Public Use
  Company Number: BDI-006462

PATIENT
  Sex: Female

DRUGS (4)
  1. PROHANCE [Suspect]
     Indication: HYPERTENSION
     Dosage: 20 ML ONCE IV
     Route: 042
     Dates: start: 20040902, end: 20040902
  2. PROHANCE [Suspect]
     Indication: NUCLEAR MAGNETIC RESONANCE IMAGING
     Dosage: 20 ML ONCE IV
     Route: 042
     Dates: start: 20040902, end: 20040902
  3. PROHANCE [Suspect]
     Indication: HYPERTENSION
     Dosage: 10 ML ONCE IV
     Route: 042
     Dates: start: 20040902, end: 20040902
  4. PROHANCE [Suspect]
     Indication: NUCLEAR MAGNETIC RESONANCE IMAGING
     Dosage: 10 ML ONCE IV
     Route: 042
     Dates: start: 20040902, end: 20040902

REACTIONS (8)
  - CHEST PAIN [None]
  - DIZZINESS [None]
  - DYSPNOEA [None]
  - ELECTROCARDIOGRAM ABNORMAL [None]
  - HYPERTENSION [None]
  - HYPOTENSION [None]
  - PALLOR [None]
  - SWELLING FACE [None]
